FAERS Safety Report 8429296-6 (Version None)
Quarter: 2012Q2

REPORT INFORMATION
  Report Type: 
  Country: None (occurrence: None)
  Receive Date: 20120323
  Receipt Date: 20110907
  Transmission Date: 20120825
  Serious: Yes (Other)
  Sender: FDA-Public Use
  Company Number: 163-21880-11072850

PATIENT
  Age: 54 Year
  Sex: Male
  Weight: 91 kg

DRUGS (4)
  1. REVLIMID [Suspect]
     Indication: PSEUDOLYMPHOMA
     Dosage: 10 MG, 1 IN 1 D, PO ; 5 MG, 1 IN 2 D, PO
     Route: 048
     Dates: start: 20101206
  2. REVLIMID [Suspect]
     Indication: PSEUDOLYMPHOMA
     Dosage: 10 MG, 1 IN 1 D, PO ; 5 MG, 1 IN 2 D, PO
     Route: 048
     Dates: start: 20110404
  3. OFORTA [Suspect]
     Indication: LYMPHOCYTIC LYMPHOMA
     Dosage: 10 MG, DAILY FOR 5 DAYS Q 3 WEEKS ; 20 MG, DAILY FOR 5 DAYS Q 22 DAYS
     Dates: start: 20110404
  4. OFORTA [Suspect]
     Indication: LYMPHOCYTIC LYMPHOMA
     Dosage: 10 MG, DAILY FOR 5 DAYS Q 3 WEEKS ; 20 MG, DAILY FOR 5 DAYS Q 22 DAYS
     Dates: start: 20110509

REACTIONS (1)
  - NEUTROPENIA [None]
